FAERS Safety Report 7945286-1 (Version None)
Quarter: 2011Q4

REPORT INFORMATION
  Report Type: 
  Country: None (occurrence: None)
  Receive Date: 20111129
  Receipt Date: 20101124
  Transmission Date: 20120403
  Serious: No
  Sender: FDA-Public Use
  Company Number: US-GLAXOSMITHKLINE-A0896392A

PATIENT
  Age: 40 Year
  Sex: Female

DRUGS (4)
  1. ATIVAN [Concomitant]
  2. PROZAC [Concomitant]
  3. AMBIEN [Concomitant]
  4. WELLBUTRIN SR [Suspect]
     Indication: DEPRESSION
     Dosage: 150MG TWICE PER DAY
     Route: 048
     Dates: start: 20090401

REACTIONS (4)
  - NAUSEA [None]
  - MALAISE [None]
  - PRODUCT QUALITY ISSUE [None]
  - PRODUCT ODOUR ABNORMAL [None]
